FAERS Safety Report 6192940-0 (Version None)
Quarter: 2009Q2

REPORT INFORMATION
  Report Type: 
  Country: None (occurrence: None)
  Receive Date: 20090513
  Receipt Date: 20090513
  Transmission Date: 20091009
  Serious: Yes (Other)
  Sender: FDA-Public Use
  Company Number: None

PATIENT
  Sex: Male
  Weight: 87.2721 kg

DRUGS (1)
  1. MIXED AMPHETAMINE SALT 30 MG COREPHARMA [Suspect]
     Indication: ATTENTION DEFICIT/HYPERACTIVITY DISORDER
     Dosage: 30 MG DAILY PO
     Route: 048
     Dates: start: 20090511, end: 20090513

REACTIONS (3)
  - EDUCATIONAL PROBLEM [None]
  - LIBIDO INCREASED [None]
  - PRODUCT SUBSTITUTION ISSUE [None]
